FAERS Safety Report 7119528-9 (Version None)
Quarter: 2010Q4

REPORT INFORMATION
  Report Type: 
  Country: None (occurrence: None)
  Receive Date: 20101123
  Receipt Date: 20101115
  Transmission Date: 20110411
  Serious: Yes (Death, Other)
  Sender: FDA-Public Use
  Company Number: US-AMGEN-QUU438626

PATIENT

DRUGS (6)
  1. VECTIBIX [Suspect]
     Indication: NASOPHARYNGEAL CANCER
     Dosage: 380 MG, Q2WK
     Dates: start: 20100507, end: 20100618
  2. GEMCITABINE [Concomitant]
     Indication: NASOPHARYNGEAL CANCER
     Dosage: 1800 MG, QWK
     Route: 042
     Dates: start: 20100507, end: 20100618
  3. PREDNISONE [Concomitant]
     Indication: FACE OEDEMA
     Dosage: UNK UNK, QD
     Route: 048
     Dates: start: 20100601, end: 20100813
  4. FENTANYL [Concomitant]
     Indication: PAIN
     Dosage: 150 MG, UNK
     Route: 061
     Dates: start: 20100301, end: 20100813
  5. NEURONTIN [Concomitant]
     Indication: NEUROPATHY PERIPHERAL
     Dosage: 300 MG, UNK
     Route: 048
     Dates: start: 20090101, end: 20100813
  6. DILAUDID [Concomitant]
     Indication: PAIN
     Dosage: 1 MG/ML, UNK
     Route: 048
     Dates: start: 20100201, end: 20100813

REACTIONS (3)
  - DRUG INEFFECTIVE [None]
  - HEAD AND NECK CANCER [None]
  - OEDEMA [None]
